FAERS Safety Report 9011416 (Version 2)
Quarter: 2013Q1

REPORT INFORMATION
  Report Type: Spontaneous
  Country: US (occurrence: US)
  Receive Date: 20130108
  Receipt Date: 20130130
  Transmission Date: 20140127
  Serious: Yes (Death)
  Sender: FDA-Public Use
  Company Number: PHEH2013US000664

PATIENT
  Sex: Female

DRUGS (1)
  1. RECLAST [Suspect]
     Indication: OSTEOPOROSIS
     Dosage: 5 MG, ANUALLY
     Route: 042

REACTIONS (4)
  - Myocardial infarction [Fatal]
  - Sepsis [Fatal]
  - Respiratory arrest [Fatal]
  - Unresponsive to stimuli [Fatal]
